FAERS Safety Report 8387007-7 (Version None)
Quarter: 2012Q2

REPORT INFORMATION
  Report Type: 
  Country: None (occurrence: None)
  Receive Date: 20120525
  Receipt Date: 20120518
  Transmission Date: 20120825
  Serious: Yes (Hospitalization)
  Sender: FDA-Public Use
  Company Number: US-PFIZER INC-2012122373

PATIENT
  Age: 43 Year
  Sex: Female

DRUGS (2)
  1. DEXAMETHASONE [Concomitant]
     Dosage: 4 MG, 4X/DAY
  2. PHENYTOIN [Suspect]
     Indication: CONVULSION
     Dosage: 100 MG, 3X/DAY

REACTIONS (32)
  - TOXIC EPIDERMAL NECROLYSIS [None]
  - COAGULOPATHY [None]
  - HAEMATOCRIT DECREASED [None]
  - NEUTROPHIL PERCENTAGE INCREASED [None]
  - ORAL CANDIDIASIS [None]
  - WHITE BLOOD CELL COUNT DECREASED [None]
  - ACTIVATED PARTIAL THROMBOPLASTIN TIME PROLONGED [None]
  - BLOOD CALCIUM DECREASED [None]
  - BLOOD GLUCOSE INCREASED [None]
  - VOMITING [None]
  - DYSURIA [None]
  - MONOCYTE PERCENTAGE DECREASED [None]
  - FIBRIN D DIMER INCREASED [None]
  - BLOOD PHOSPHORUS DECREASED [None]
  - RESPIRATORY FAILURE [None]
  - LYMPHOCYTE PERCENTAGE DECREASED [None]
  - PROTHROMBIN TIME PROLONGED [None]
  - BLOOD UREA DECREASED [None]
  - RASH MACULO-PAPULAR [None]
  - MEAN CELL VOLUME DECREASED [None]
  - BLOOD CREATININE DECREASED [None]
  - BLOOD SODIUM DECREASED [None]
  - CELLULITIS [None]
  - BLOOD FIBRINOGEN INCREASED [None]
  - C-REACTIVE PROTEIN INCREASED [None]
  - PREALBUMIN DECREASED [None]
  - BLOOD LACTATE DEHYDROGENASE INCREASED [None]
  - ODYNOPHAGIA [None]
  - INTERNATIONAL NORMALISED RATIO DECREASED [None]
  - GAMMA-GLUTAMYLTRANSFERASE INCREASED [None]
  - PLATELET COUNT DECREASED [None]
  - SWELLING FACE [None]
